FAERS Safety Report 5305581-1 (Version None)
Quarter: 2007Q2

REPORT INFORMATION
  Report Type: 
  Country: None (occurrence: None)
  Receive Date: 20070416
  Receipt Date: 20070330
  Transmission Date: 20071010
  Serious: Yes (Hospitalization)
  Sender: FDA-Public Use
  Company Number: MEDI-0005733

PATIENT
  Age: 7 Month
  Sex: Female

DRUGS (5)
  1. SYNAGIS [Suspect]
     Dosage: INTRAMUSCULAR
     Route: 030
     Dates: start: 20061102, end: 20070205
  2. SYNAGIS [Suspect]
     Dosage: INTRAMUSCULAR
     Route: 030
     Dates: start: 20070305, end: 20070305
  3. SYNAGIS [Suspect]
     Dosage: INTRAMUSCULAR
     Route: 030
     Dates: start: 20061102
  4. SYNAGIS [Suspect]
     Dosage: INTRAMUSCULAR
     Route: 030
     Dates: start: 20061201
  5. SYNAGIS [Suspect]
     Dosage: INTRAMUSCULAR
     Route: 030
     Dates: start: 20070104

REACTIONS (1)
  - RESPIRATORY SYNCYTIAL VIRUS BRONCHIOLITIS [None]
